FAERS Safety Report 10507276 (Version 3)
Quarter: 2014Q4

REPORT INFORMATION
  Report Type: Report from Study
  Country: US (occurrence: US)
  Receive Date: 20141009
  Receipt Date: 20141029
  Transmission Date: 20150528
  Serious: Yes (Hospitalization)
  Sender: FDA-Public Use
  Company Number: US-MYLANLABS-2014M1006254

PATIENT
  Age: 61 Year
  Sex: Male
  Weight: 56.24 kg

DRUGS (6)
  1. SPIRIVA [Concomitant]
     Active Substance: TIOTROPIUM BROMIDE MONOHYDRATE
     Indication: CHRONIC OBSTRUCTIVE PULMONARY DISEASE
     Dosage: 18 ?G, QD
     Route: 055
     Dates: start: 20140310
  2. VIAGRA [Concomitant]
     Active Substance: SILDENAFIL CITRATE
     Indication: ERECTILE DYSFUNCTION
     Dosage: 100 MG, PRN
     Route: 048
     Dates: start: 2006
  3. FORMOTEROL FUMARATE SOLUTION (FOR NEBULISATION) [Suspect]
     Active Substance: FORMOTEROL FUMARATE
     Indication: CHRONIC OBSTRUCTIVE PULMONARY DISEASE
     Dosage: 20 ?G, BID
     Route: 055
     Dates: start: 20140520, end: 20140930
  4. FLOVENT [Concomitant]
     Active Substance: FLUTICASONE PROPIONATE
     Indication: CHRONIC OBSTRUCTIVE PULMONARY DISEASE
     Dosage: 110 ?G, BID
     Route: 055
     Dates: start: 20140505
  5. IBUPROFEN. [Concomitant]
     Active Substance: IBUPROFEN
     Indication: NECK PAIN
     Dosage: 200 MG, PRN
     Route: 048
     Dates: start: 1995
  6. PREDNISONE. [Suspect]
     Active Substance: PREDNISONE
     Indication: CHRONIC OBSTRUCTIVE PULMONARY DISEASE
     Dosage: 20 MG, UNK
     Dates: start: 20140808, end: 20140903

REACTIONS (13)
  - Hypotension [Recovered/Resolved]
  - Diabetes mellitus inadequate control [None]
  - Chronic obstructive pulmonary disease [None]
  - Bladder outlet obstruction [Recovered/Resolved]
  - Osteoarthritis [None]
  - Leukocytosis [None]
  - Condition aggravated [None]
  - Body temperature increased [None]
  - Type 2 diabetes mellitus [Not Recovered/Not Resolved]
  - Diabetes mellitus [None]
  - Spinal osteoarthritis [None]
  - Hyperglycaemia [None]
  - Diabetes with hyperosmolarity [None]

NARRATIVE: CASE EVENT DATE: 20140924
